FAERS Safety Report 19927792 (Version 1)
Quarter: 2021Q4

REPORT INFORMATION
  Report Type: Spontaneous
  Country: US (occurrence: US)
  Receive Date: 20211007
  Receipt Date: 20211007
  Transmission Date: 20220304
  Serious: No
  Sender: FDA-Public Use
  Company Number: US-INDIVIOR US-INDV-130042-2021

PATIENT
  Sex: Female

DRUGS (1)
  1. SUBLOCADE [Suspect]
     Active Substance: BUPRENORPHINE
     Indication: Product used for unknown indication
     Dosage: 300 MILLIGRAM, QMO
     Route: 065
     Dates: start: 202012

REACTIONS (16)
  - Eye irritation [Unknown]
  - Tinnitus [Unknown]
  - Vertigo [Unknown]
  - Anal haemorrhage [Unknown]
  - Photophobia [Unknown]
  - Confusional state [Unknown]
  - Constipation [Unknown]
  - Dizziness [Unknown]
  - Dyspnoea [Unknown]
  - Hypertension [Unknown]
  - Injection site erythema [Unknown]
  - Injection site pain [Unknown]
  - Injection site warmth [Unknown]
  - Nausea [Unknown]
  - Pyrexia [Unknown]
  - Wrong technique in product usage process [Recovered/Resolved]

NARRATIVE: CASE EVENT DATE: 20210601
